APPROVED DRUG PRODUCT: MAGNESIUM SULFATE IN PLASTIC CONTAINER
Active Ingredient: MAGNESIUM SULFATE
Strength: 2GM/50ML (40MG/ML)
Dosage Form/Route: INJECTABLE;INJECTION
Application: A216597 | Product #001 | TE Code: AP
Applicant: AMNEAL EU LTD
Approved: Feb 15, 2023 | RLD: No | RS: No | Type: RX